FAERS Safety Report 9353052 (Version 2)
Quarter: 2013Q3

REPORT INFORMATION
  Report Type: Spontaneous
  Country: US (occurrence: None)
  Receive Date: 20130612
  Receipt Date: 20130718
  Transmission Date: 20140515
  Serious: Yes (Death, Other)
  Sender: FDA-Public Use
  Company Number: JPI-P-031484

PATIENT
  Age: 29 Year
  Sex: Female
  Weight: 58.97 kg

DRUGS (4)
  1. XYREM [Suspect]
     Indication: CATAPLEXY
     Dosage: 9 GM  (4.5 GM, 2 IN 1 D), ORAL
     Route: 048
     Dates: start: 20100610, end: 20130416
  2. VENLAFAXINE HYDROCHLORIDE [Concomitant]
  3. CLONAZEPAN [Concomitant]
  4. SERTRALINE HYDROCHLORIDE [Concomitant]

REACTIONS (8)
  - Post-traumatic stress disorder [None]
  - Agoraphobia [None]
  - Hallucination [None]
  - Anxiety [None]
  - Completed suicide [None]
  - Overdose [None]
  - Depression [None]
  - Condition aggravated [None]
